FAERS Safety Report 13421414 (Version 2)
Quarter: 2017Q2

REPORT INFORMATION
  Report Type: Spontaneous
  Country: US (occurrence: US)
  Receive Date: 20170410
  Receipt Date: 20170511
  Transmission Date: 20170830
  Serious: No
  Sender: FDA-Public Use
  Company Number: US-009507513-1704USA003378

PATIENT
  Age: 63 Year
  Sex: Male

DRUGS (4)
  1. BELSOMRA [Suspect]
     Active Substance: SUVOREXANT
     Dosage: 20 MG/ONE TABLET AT NIGHT
     Route: 048
  2. XANAX [Concomitant]
     Active Substance: ALPRAZOLAM
     Dosage: 1 MG, BID
  3. VALIUM [Concomitant]
     Active Substance: DIAZEPAM
     Dosage: 10 MG, UNK
  4. OXYCODONE [Concomitant]
     Active Substance: OXYCODONE
     Dosage: 15 MG, THREE TIMES A DAY

REACTIONS (1)
  - Somnolence [Unknown]
